FAERS Safety Report 9057645 (Version 1)
Quarter: 2013Q1

REPORT INFORMATION
  Report Type: Spontaneous
  Country: US (occurrence: None)
  Receive Date: 20130204
  Receipt Date: 20130204
  Transmission Date: 20140127
  Serious: Yes (Hospitalization)
  Sender: FDA-Public Use
  Company Number: None

PATIENT
  Age: 86 Year
  Sex: Female
  Weight: 70.5 kg

DRUGS (8)
  1. TUMS [Suspect]
     Indication: GASTROOESOPHAGEAL REFLUX DISEASE
     Route: 048
  2. ALKA SELTZER [Suspect]
     Route: 048
  3. ZANTAC [Concomitant]
  4. KCL [Concomitant]
  5. BISOPROLOL [Concomitant]
  6. ROXICODONE [Concomitant]
  7. ALPRAZOLAM [Concomitant]
  8. SUCRALFATE [Concomitant]

REACTIONS (3)
  - Hypercalcaemia [None]
  - Milk-alkali syndrome [None]
  - Blood potassium abnormal [None]
